FAERS Safety Report 7503257-3 (Version None)
Quarter: 2011Q2

REPORT INFORMATION
  Report Type: 
  Country: None (occurrence: None)
  Receive Date: 20110525
  Receipt Date: 20110110
  Transmission Date: 20111010
  Serious: No
  Sender: FDA-Public Use
  Company Number: A0904962A

PATIENT
  Age: 51 Year
  Sex: Male

DRUGS (3)
  1. ZOVIRAX [Suspect]
     Indication: GENITAL HERPES
     Dosage: 1APP TWICE PER DAY
     Route: 061
     Dates: start: 20050101
  2. BACTROBAN [Suspect]
     Indication: BACTERIAL INFECTION
     Dosage: 1APP THREE TIMES PER DAY
     Route: 061
     Dates: start: 20050101
  3. VALTREX [Suspect]
     Indication: GENITAL HERPES
     Dosage: 500MG TWICE PER DAY
     Route: 048
     Dates: start: 20050101

REACTIONS (4)
  - PAIN [None]
  - DRUG INEFFECTIVE [None]
  - GAIT DISTURBANCE [None]
  - FALSE NEGATIVE INVESTIGATION RESULT [None]
